FAERS Safety Report 19357621 (Version 3)
Quarter: 2022Q1

REPORT INFORMATION
  Report Type: Spontaneous
  Country: US (occurrence: US)
  Receive Date: 20210602
  Receipt Date: 20220328
  Transmission Date: 20220423
  Serious: No
  Sender: FDA-Public Use
  Company Number: US-CIPLA LTD.-2021US03755

PATIENT

DRUGS (10)
  1. NABUMETONE [Suspect]
     Active Substance: NABUMETONE
     Indication: Product used for unknown indication
     Dosage: UNK
     Route: 065
  2. TYVASO [Suspect]
     Active Substance: TREPROSTINIL
     Indication: Pulmonary arterial hypertension
     Dosage: 18-54 ?G (3-9 BREATHS), QID
     Dates: start: 20210128, end: 2021
  3. TYVASO [Suspect]
     Active Substance: TREPROSTINIL
     Dosage: 54 UG, UNK
     Dates: start: 2021, end: 20210501
  4. TYVASO [Suspect]
     Active Substance: TREPROSTINIL
     Dosage: 60 MICROGRAM, QID
     Dates: start: 20210501, end: 202105
  5. TYVASO [Suspect]
     Active Substance: TREPROSTINIL
     Dosage: 54 MICROGRAM, QID
     Dates: start: 202105, end: 202105
  6. TYVASO [Suspect]
     Active Substance: TREPROSTINIL
     Dosage: 18-54 ?G, QID
     Dates: start: 2021, end: 2021
  7. TYVASO [Suspect]
     Active Substance: TREPROSTINIL
     Dosage: 48 ?G, UNK
     Dates: start: 20210521, end: 2021
  8. TYVASO [Suspect]
     Active Substance: TREPROSTINIL
     Dosage: 60-120 ?G (10-20 BREATHS), QID
     Dates: start: 2021, end: 2021
  9. SILDENAFIL CITRATE [Concomitant]
     Active Substance: SILDENAFIL CITRATE
     Indication: Product used for unknown indication
     Dosage: UNK
     Route: 065
  10. AMLODIPINE [Concomitant]
     Active Substance: AMLODIPINE BESYLATE
     Indication: Product used for unknown indication
     Dosage: UNK
     Route: 065

REACTIONS (10)
  - Dry skin [Unknown]
  - Arthralgia [Not Recovered/Not Resolved]
  - Neck pain [Unknown]
  - Back pain [Unknown]
  - Throat irritation [Not Recovered/Not Resolved]
  - Abdominal distension [Not Recovered/Not Resolved]
  - Pruritus [Not Recovered/Not Resolved]
  - Malaise [Unknown]
  - Fatigue [Unknown]
  - Alopecia [Unknown]

NARRATIVE: CASE EVENT DATE: 20210101
